FAERS Safety Report 4442093-1 (Version None)
Quarter: 2004Q3

REPORT INFORMATION
  Report Type: 
  Country: None (occurrence: None)
  Receive Date: 20040903
  Receipt Date: 20040625
  Transmission Date: 20050211
  Serious: Yes (Hospitalization)
  Sender: FDA-Public Use
  Company Number: 2004UW11693

PATIENT
  Age: 58 Year
  Sex: Female

DRUGS (4)
  1. CRESTOR [Suspect]
     Dosage: 10 MG QD PO
     Route: 048
     Dates: start: 20040218, end: 20040429
  2. AVANDIA [Concomitant]
  3. GLUCOVANCE [Concomitant]
  4. DIOVANE [Concomitant]

REACTIONS (1)
  - HEPATITIS [None]
